FAERS Safety Report 21055907 (Version 1)
Quarter: 2022Q3

REPORT INFORMATION
  Report Type: Report from Study
  Country: US (occurrence: US)
  Receive Date: 20220708
  Receipt Date: 20220708
  Transmission Date: 20221027
  Serious: Yes (Other)
  Sender: FDA-Public Use
  Company Number: US-AUROBINDO-AUR-APL-2022-025254

PATIENT
  Age: 12 Year
  Sex: Female

DRUGS (5)
  1. CLONAZEPAM [Suspect]
     Active Substance: CLONAZEPAM
     Indication: Epileptic encephalopathy
     Dosage: UNK
     Route: 065
  2. LEVETIRACETAM [Suspect]
     Active Substance: LEVETIRACETAM
     Indication: Epileptic encephalopathy
     Dosage: UNK
     Route: 065
  3. FELBAMATE [Suspect]
     Active Substance: FELBAMATE
     Indication: Epileptic encephalopathy
     Dosage: UNK
     Route: 065
  4. LACOSAMIDE [Suspect]
     Active Substance: LACOSAMIDE
     Indication: Epileptic encephalopathy
     Dosage: UNK
     Route: 065
  5. PHENOBARBITAL [Suspect]
     Active Substance: PHENOBARBITAL
     Indication: Epileptic encephalopathy
     Dosage: UNK
     Route: 065

REACTIONS (1)
  - Renal failure [Unknown]
